FAERS Safety Report 25568033 (Version 1)
Quarter: 2025Q3

REPORT INFORMATION
  Report Type: Spontaneous
  Country: US (occurrence: US)
  Receive Date: 20250716
  Receipt Date: 20250716
  Transmission Date: 20251020
  Serious: Yes (Hospitalization)
  Sender: AMGEN
  Company Number: US-AMGEN-USASP2025134468

PATIENT
  Sex: Male

DRUGS (1)
  1. REPATHA [Suspect]
     Active Substance: EVOLOCUMAB
     Indication: Blood cholesterol abnormal
     Dosage: UNK, Q2WK
     Route: 058
     Dates: start: 2024

REACTIONS (9)
  - Pharyngeal swelling [Recovered/Resolved]
  - Vertigo [Unknown]
  - Lip swelling [Recovered/Resolved]
  - Swollen tongue [Unknown]
  - Dehydration [Recovering/Resolving]
  - Fall [Recovering/Resolving]
  - Illness anxiety disorder [Unknown]
  - Limb injury [Unknown]
  - Head injury [Unknown]

NARRATIVE: CASE EVENT DATE: 20250705
